FAERS Safety Report 6672917-9 (Version None)
Quarter: 2010Q2

REPORT INFORMATION
  Report Type: 
  Country: None (occurrence: None)
  Receive Date: 20100408
  Receipt Date: 20100330
  Transmission Date: 20101027
  Serious: Yes (Other)
  Sender: FDA-Public Use
  Company Number: PHHY2010DE20276

PATIENT
  Sex: Male
  Weight: 70 kg

DRUGS (2)
  1. EXELON [Suspect]
     Indication: DEMENTIA ALZHEIMER'S TYPE
     Dosage: 4.6 MG, QD
     Route: 062
     Dates: start: 20091016, end: 20091207
  2. MIRTAZAPINE [Concomitant]
     Dosage: 15 MG, QD
     Route: 048

REACTIONS (5)
  - AGITATION [None]
  - ANXIETY [None]
  - BALANCE DISORDER [None]
  - GAIT DISTURBANCE [None]
  - PANIC ATTACK [None]
